FAERS Safety Report 11440288 (Version 1)
Quarter: 2015Q3

REPORT INFORMATION
  Report Type: Spontaneous
  Country: US (occurrence: US)
  Receive Date: 20150901
  Receipt Date: 20150901
  Transmission Date: 20151125
  Serious: No
  Sender: FDA-Public Use
  Company Number: US-ROCHE-1145759

PATIENT
  Sex: Male

DRUGS (3)
  1. RIBAVIRIN. [Suspect]
     Active Substance: RIBAVIRIN
     Indication: HEPATITIS C
     Route: 065
     Dates: start: 20121005
  2. PEGASYS [Suspect]
     Active Substance: PEGINTERFERON ALFA-2A
     Indication: HEPATITIS C
     Route: 065
     Dates: start: 20121005
  3. PEGASYS [Suspect]
     Active Substance: PEGINTERFERON ALFA-2A
     Dosage: DOSE REDUCED
     Route: 065

REACTIONS (9)
  - Pyrexia [Unknown]
  - Fatigue [Unknown]
  - Irritability [Unknown]
  - Decreased appetite [Unknown]
  - Chills [Unknown]
  - Pain [Unknown]
  - Dysgeusia [Unknown]
  - Weight decreased [Unknown]
  - White blood cell count decreased [Unknown]
